FAERS Safety Report 23240387 (Version 2)
Quarter: 2024Q1

REPORT INFORMATION
  Report Type: Report from Study
  Country: US (occurrence: US)
  Receive Date: 20231129
  Receipt Date: 20240313
  Transmission Date: 20240409
  Serious: Yes (Hospitalization, Other)
  Sender: FDA-Public Use
  Company Number: US-BAXTER-2023BAX036412

PATIENT
  Age: 79 Year
  Sex: Female
  Weight: 54.7 kg

DRUGS (29)
  1. DOXORUBICIN [Suspect]
     Active Substance: DOXORUBICIN
     Indication: Ovarian cancer
     Dosage: 3 MG/KG
     Route: 065
     Dates: start: 20230406
  2. DOXORUBICIN [Suspect]
     Active Substance: DOXORUBICIN
     Dosage: 40 MILLIGRAM/SQ. METER, C1D1, FIRST AND MOST RECENT DOSE PRIOR TO THE EVENT ONSET
     Route: 042
     Dates: start: 20230418, end: 20230418
  3. DOXORUBICIN [Suspect]
     Active Substance: DOXORUBICIN
     Dosage: UNK
     Route: 065
     Dates: end: 20230524
  4. INVESTIGATIONAL PRODUCT [Suspect]
     Active Substance: INVESTIGATIONAL PRODUCT
     Indication: Ovarian cancer
     Dosage: 3 MILLIGRAM/KILOGRAM, C1D8, FIRST AND THE MOST RECENT DOSE PRIOR TO THE EVENT ONSET
     Route: 042
     Dates: start: 20230425, end: 20230425
  5. INVESTIGATIONAL PRODUCT [Suspect]
     Active Substance: INVESTIGATIONAL PRODUCT
     Dosage: UNK
     Route: 065
     Dates: end: 20230524
  6. SODIUM CHLORIDE [Concomitant]
     Active Substance: SODIUM CHLORIDE
     Indication: Ileus
     Dosage: UNK
     Route: 065
     Dates: start: 20230426, end: 20230426
  7. ELECTROLYTES NOS [Concomitant]
     Active Substance: ELECTROLYTES NOS
     Indication: Ileus
     Dosage: UNK, PARENTERAL
     Route: 065
     Dates: start: 20230426, end: 20230426
  8. LEVOTHYROXINE [Concomitant]
     Active Substance: LEVOTHYROXINE\LEVOTHYROXINE SODIUM
     Indication: Hyperthyroidism
     Dosage: UNK, ONGOING
     Route: 065
     Dates: start: 19980101
  9. POTASSIUM GLUCONATE [Concomitant]
     Active Substance: POTASSIUM GLUCONATE
     Indication: Supplementation therapy
     Dosage: UNK, START DATE: 2022, ONGOING
     Route: 065
  10. LOSARTAN [Concomitant]
     Active Substance: LOSARTAN
     Indication: Hypertension
     Dosage: UNK, ONGOING
     Route: 065
     Dates: start: 20201201
  11. CHOLECALCIFEROL [Concomitant]
     Active Substance: CHOLECALCIFEROL
     Indication: Supplementation therapy
     Dosage: UNK, ONGOING
     Route: 065
     Dates: start: 20220602
  12. PROMETHAZINE [Concomitant]
     Active Substance: PROMETHAZINE HYDROCHLORIDE
     Indication: Prophylaxis of nausea and vomiting
     Dosage: UNK, ONGOING
     Route: 065
     Dates: start: 20220610
  13. PROMETHAZINE [Concomitant]
     Active Substance: PROMETHAZINE HYDROCHLORIDE
     Indication: Ileus
  14. CALCIUM [Concomitant]
     Active Substance: CALCIUM
     Indication: Supplementation therapy
     Dosage: UNK, START DATE: APR-2022, ONGOING
     Route: 065
  15. MAGNESIUM OXIDE [Concomitant]
     Active Substance: MAGNESIUM OXIDE
     Indication: Supplementation therapy
     Dosage: UNK, ONGOING
     Route: 065
     Dates: start: 20220412
  16. PHENERGAN [Concomitant]
     Active Substance: PROMETHAZINE HYDROCHLORIDE
     Indication: Adverse event
     Dosage: UNK, ONGOING
     Route: 065
     Dates: start: 20230421
  17. OLANZAPINE [Concomitant]
     Active Substance: OLANZAPINE
     Indication: Ileus
     Dosage: UNK, ONGOING
     Route: 065
     Dates: start: 20230424
  18. ONDANSETRON HYDROCHLORIDE [Concomitant]
     Active Substance: ONDANSETRON HYDROCHLORIDE
     Dosage: UNK
     Route: 065
     Dates: start: 20230424
  19. METOCLOPRAMIDE [Concomitant]
     Active Substance: METOCLOPRAMIDE
     Indication: Ileus
     Dosage: UNK, ONGOING
     Route: 065
     Dates: start: 20230425
  20. POTASSIUM CHLORIDE [Concomitant]
     Active Substance: POTASSIUM CHLORIDE
     Indication: Hypokalaemia
     Dosage: UNK, ONGOING
     Route: 065
     Dates: start: 20230426
  21. MAGNESIUM SULFATE [Concomitant]
     Active Substance: MAGNESIUM SULFATE\MAGNESIUM SULFATE HEPTAHYDRATE
     Indication: Hypomagnesaemia
     Dosage: UNK
     Route: 065
     Dates: start: 20230426, end: 20230426
  22. ENOXAPARIN SODIUM [Concomitant]
     Active Substance: ENOXAPARIN SODIUM
     Indication: Prophylaxis
     Dosage: UNK
     Route: 065
     Dates: start: 20230426, end: 20230428
  23. ONDANSETRON [Concomitant]
     Active Substance: ONDANSETRON
     Indication: Ileus
     Dosage: UNK
     Route: 065
     Dates: start: 20230426, end: 20230429
  24. BISACODYL [Concomitant]
     Active Substance: BISACODYL
     Indication: Constipation
     Dosage: UNK
     Route: 065
     Dates: start: 20230426, end: 20230426
  25. DEXAMETHASONE [Concomitant]
     Active Substance: DEXAMETHASONE
     Indication: Ileus
     Dosage: UNK
     Route: 065
     Dates: start: 20230426, end: 20230429
  26. BACITRACIN [Concomitant]
     Active Substance: BACITRACIN
     Indication: Wound infection
     Dosage: UNK
     Route: 065
     Dates: start: 20230427, end: 20230430
  27. KETOROLAC TROMETHAMINE [Concomitant]
     Active Substance: KETOROLAC TROMETHAMINE
     Indication: Abdominal pain
     Dosage: UNK
     Route: 065
     Dates: start: 20230427, end: 20230428
  28. ALBUMIN HUMAN [Concomitant]
     Active Substance: ALBUMIN HUMAN
     Indication: Hypoalbuminaemia
     Dosage: UNK
     Route: 065
     Dates: start: 20230428, end: 20230428
  29. CALCIUM GLUCONATE [Concomitant]
     Active Substance: CALCIUM GLUCONATE
     Indication: Hypocalcaemia
     Dosage: UNK
     Route: 065
     Dates: start: 20230430, end: 20230430

REACTIONS (1)
  - Embolism [Recovered/Resolved]

NARRATIVE: CASE EVENT DATE: 20230514
